FAERS Safety Report 22361010 (Version 9)
Quarter: 2025Q2

REPORT INFORMATION
  Report Type: Spontaneous
  Country: US (occurrence: US)
  Receive Date: 20230524
  Receipt Date: 20250626
  Transmission Date: 20250717
  Serious: No
  Sender: PFIZER
  Company Number: US-PFIZER INC-PV202300080891

PATIENT
  Age: 82 Year
  Sex: Female
  Weight: 47.166 kg

DRUGS (3)
  1. BRAFTOVI [Suspect]
     Active Substance: ENCORAFENIB
     Indication: Colorectal cancer metastatic
     Dosage: 4 CAPSULES (75 MG CAPSULE) FOR A TOTAL OF 300 MG ORALLY DAILY
     Route: 048
     Dates: start: 20230515
  2. BRAFTOVI [Suspect]
     Active Substance: ENCORAFENIB
     Indication: Bone density abnormal
  3. CETUXIMAB [Suspect]
     Active Substance: CETUXIMAB
     Indication: Colorectal cancer metastatic
     Dates: start: 20230515

REACTIONS (2)
  - Pain in extremity [Unknown]
  - Rash [Unknown]
